FAERS Safety Report 10775058 (Version 1)
Quarter: 2015Q1

REPORT INFORMATION
  Report Type: Spontaneous
  Country: US (occurrence: None)
  Receive Date: 20150205
  Receipt Date: 20150205
  Transmission Date: 20150721
  Serious: Yes (Death)
  Sender: FDA-Public Use
  Company Number: 1224850-2015-00003

PATIENT
  Age: 45 Year
  Sex: Male
  Weight: 105 kg

DRUGS (15)
  1. SENSIPAR [Concomitant]
     Active Substance: CINACALCET HYDROCHLORIDE
  2. TUMS [Concomitant]
     Active Substance: CALCIUM CARBONATE
  3. FERROUS SULFATE [Concomitant]
     Active Substance: FERROUS SULFATE\FERROUS SULFATE, DRIED
  4. VITAMIN D3 [Concomitant]
     Active Substance: CHOLECALCIFEROL
  5. EPOGEN [Concomitant]
     Active Substance: ERYTHROPOIETIN
  6. PHOSLO [Suspect]
     Active Substance: CALCIUM ACETATE
     Indication: CHRONIC KIDNEY DISEASE
     Dosage: CAPSULE X
     Dates: start: 20141217, end: 20150111
  7. LIBERTY CYCLER [Concomitant]
     Active Substance: DEVICE
  8. TRAMADOL [Concomitant]
     Active Substance: TRAMADOL
  9. LACTULOSE. [Concomitant]
     Active Substance: LACTULOSE
  10. LANTUS [Concomitant]
     Active Substance: INSULIN GLARGINE
  11. LIBERTY CYCLER SET [Concomitant]
  12. DELFELX PD SOLUTIONS [Concomitant]
  13. MAGNESIUM OXIDE. [Concomitant]
     Active Substance: MAGNESIUM OXIDE
  14. RENA VITE [Concomitant]
  15. HUMALOG KWIKPEN [Concomitant]
     Active Substance: INSULIN LISPRO

REACTIONS (1)
  - Death [None]

NARRATIVE: CASE EVENT DATE: 20150111
